FAERS Safety Report 9872595 (Version 2)
Quarter: 2014Q1

REPORT INFORMATION
  Report Type: Other
  Country: US (occurrence: US)
  Receive Date: 20140206
  Receipt Date: 20140206
  Transmission Date: 20141002
  Serious: Yes (Other)
  Sender: FDA-Public Use
  Company Number: US-ACORDA-ACO_100057_2013

PATIENT
  Age: 64 Year
  Sex: Male

DRUGS (6)
  1. AMPYRA [Suspect]
     Indication: MULTIPLE SCLEROSIS
     Dosage: 10 MG, BID
     Route: 048
     Dates: start: 201303
  2. AMPYRA [Suspect]
     Indication: PARAPARESIS
  3. BACLOFEN [Suspect]
     Indication: MUSCLE SPASMS
     Dosage: 10 MG, QD
     Route: 048
     Dates: start: 20130918, end: 201310
  4. NAPROXEN [Suspect]
     Indication: HEADACHE
     Dosage: UNK, PRN
     Route: 065
  5. ARICEPT [Concomitant]
     Indication: PRODUCT USED FOR UNKNOWN INDICATION
     Dosage: 10 , ONCE
     Route: 048
  6. COPAXONE [Concomitant]
     Indication: PRODUCT USED FOR UNKNOWN INDICATION
     Dosage: UNK, QD
     Route: 058

REACTIONS (2)
  - Confusional state [Recovered/Resolved]
  - Muscle spasms [Recovered/Resolved]
